FAERS Safety Report 5504961-9 (Version None)
Quarter: 2007Q4

REPORT INFORMATION
  Report Type: 
  Country: None (occurrence: None)
  Receive Date: 20071031
  Receipt Date: 20071019
  Transmission Date: 20080405
  Serious: Yes (Hospitalization)
  Sender: FDA-Public Use
  Company Number: 2007BI022405

PATIENT
  Age: 52 Year
  Sex: Female

DRUGS (1)
  1. AVONEX [Suspect]
     Indication: MULTIPLE SCLEROSIS
     Dosage: 30 UG; QW; I M
     Route: 030
     Dates: start: 20001009

REACTIONS (15)
  - ARTHRITIS INFECTIVE [None]
  - BACTERIAL INFECTION [None]
  - BURNING SENSATION [None]
  - DEMYELINATION [None]
  - DIZZINESS [None]
  - FALL [None]
  - FATIGUE [None]
  - INSOMNIA [None]
  - MULTIPLE SCLEROSIS RELAPSE [None]
  - MUSCULOSKELETAL PAIN [None]
  - NEUROPATHY [None]
  - OPTIC NEURITIS [None]
  - PAIN [None]
  - PAIN IN EXTREMITY [None]
  - STRESS [None]
